FAERS Safety Report 18058117 (Version 1)
Quarter: 2020Q3

REPORT INFORMATION
  Report Type: Spontaneous
  Country: US (occurrence: US)
  Receive Date: 20200722
  Receipt Date: 20200722
  Transmission Date: 20201103
  Serious: No
  Sender: FDA-Public Use
  Company Number: None

PATIENT
  Age: 81 Year
  Sex: Male

DRUGS (1)
  1. ERLEADA [Suspect]
     Active Substance: APALUTAMIDE
     Route: 048
     Dates: start: 20200424, end: 20200722

REACTIONS (3)
  - Prostatic specific antigen increased [None]
  - Therapy change [None]
  - Disease progression [None]

NARRATIVE: CASE EVENT DATE: 20200722
